FAERS Safety Report 9197258 (Version 1)
Quarter: 2013Q1

REPORT INFORMATION
  Report Type: Spontaneous
  Country: DE (occurrence: DE)
  Receive Date: 20130328
  Receipt Date: 20130328
  Transmission Date: 20140127
  Serious: Yes (Hospitalization)
  Sender: FDA-Public Use
  Company Number: DE-ASTRAZENECA-2012SE51050

PATIENT
  Sex: Male

DRUGS (6)
  1. SEROQUEL PROLONG [Suspect]
     Indication: BIPOLAR I DISORDER
     Route: 048
  2. DIAZEPAM [Suspect]
     Indication: ANXIETY
     Dosage: AS NEEDED
     Route: 065
  3. IBUPROFEN [Suspect]
     Route: 048
  4. BACLOFEN [Suspect]
     Indication: BIPOLAR I DISORDER
     Route: 048
  5. OPIPRAMOL [Suspect]
     Indication: ANXIETY
     Route: 048
  6. LORAZEPAM [Suspect]
     Indication: ANXIETY
     Dosage: AS NEEDED
     Route: 065

REACTIONS (4)
  - Acute psychosis [Unknown]
  - Respiratory depression [Recovered/Resolved]
  - Hypotension [Recovered/Resolved]
  - Bradycardia [Recovered/Resolved]
